FAERS Safety Report 22660368 (Version 1)
Quarter: 2023Q2

REPORT INFORMATION
  Report Type: Report from Study
  Country: DE (occurrence: DE)
  Receive Date: 20230630
  Receipt Date: 20230630
  Transmission Date: 20230722
  Serious: Yes (Hospitalization, Other)
  Sender: FDA-Public Use
  Company Number: DE-002147023-NVSC2022DE287710

PATIENT
  Age: 29 Year
  Sex: Male
  Weight: 75 kg

DRUGS (3)
  1. COSENTYX [Suspect]
     Active Substance: SECUKINUMAB
     Indication: Psoriasis
     Dosage: 300 MG, QW (ON 1D/WK)
     Route: 065
     Dates: start: 20191122, end: 20191206
  2. CALCITRIOL [Concomitant]
     Active Substance: CALCITRIOL
     Indication: Product used for unknown indication
     Dosage: SILKIS CREAM WAS USED TWICE DAILY IN THE ANI AND INGUINAL REGION, BID
     Route: 065
  3. CALCIPOTRIENE [Concomitant]
     Active Substance: CALCIPOTRIENE
     Indication: Product used for unknown indication
     Dosage: SOLUTION IN EAR CANALS
     Route: 065

REACTIONS (13)
  - Condition aggravated [Recovered/Resolved]
  - Psoriasis [Recovered/Resolved]
  - Pruritus [Unknown]
  - Diarrhoea haemorrhagic [Recovering/Resolving]
  - Haematochezia [Recovered/Resolved]
  - Skin disorder [Unknown]
  - Erythema [Unknown]
  - Skin plaque [Unknown]
  - Skin exfoliation [Unknown]
  - Nail pitting [Unknown]
  - Jaundice [Unknown]
  - Abdominal pain [Recovered/Resolved]
  - Diarrhoea [Recovered/Resolved]

NARRATIVE: CASE EVENT DATE: 20191123
